FAERS Safety Report 17871051 (Version 1)
Quarter: 2020Q2

REPORT INFORMATION
  Report Type: Spontaneous
  Country: US (occurrence: US)
  Receive Date: 20200605
  Receipt Date: 20200605
  Transmission Date: 20200714
  Serious: No
  Sender: FDA-Public Use
  Company Number: None

PATIENT
  Sex: Female

DRUGS (1)
  1. EVEROLIMUS 7.5MG PAR [Suspect]
     Active Substance: EVEROLIMUS
     Indication: METASTASES TO BONE
     Route: 048
     Dates: start: 20200313

REACTIONS (4)
  - Vomiting [None]
  - Peripheral swelling [None]
  - Nausea [None]
  - Cerebrovascular accident [None]
